FAERS Safety Report 8400821-4 (Version None)
Quarter: 2012Q2

REPORT INFORMATION
  Report Type: 
  Country: None (occurrence: None)
  Receive Date: 20120531
  Receipt Date: 20110914
  Transmission Date: 20120825
  Serious: Yes (Death, Hospitalization, Other)
  Sender: FDA-Public Use
  Company Number: RS-ROCHE-1073328

PATIENT
  Sex: Male
  Weight: 69 kg

DRUGS (5)
  1. PREDNISOLONE [Suspect]
     Indication: RENAL TRANSPLANT
     Route: 042
     Dates: start: 20080809
  2. TACROLIMUS [Suspect]
     Indication: RENAL TRANSPLANT
     Route: 048
     Dates: start: 20080814
  3. RANISAN [Concomitant]
     Indication: RENAL TRANSPLANT
     Route: 042
     Dates: start: 20080809
  4. CEFTRIAXONE [Concomitant]
     Indication: RENAL TRANSPLANT
     Route: 042
     Dates: start: 20080809
  5. CELLCEPT [Suspect]
     Indication: RENAL TRANSPLANT
     Route: 048
     Dates: start: 20080809

REACTIONS (4)
  - CYTOMEGALOVIRUS INFECTION [None]
  - OTITIS MEDIA [None]
  - CARDIOPULMONARY FAILURE [None]
  - GASTRIC ULCER [None]
